FAERS Safety Report 9366260 (Version 1)
Quarter: 2013Q2

REPORT INFORMATION
  Report Type: Spontaneous
  Country: US (occurrence: US)
  Receive Date: 20130625
  Receipt Date: 20130625
  Transmission Date: 20140414
  Serious: Yes (Hospitalization, Other)
  Sender: FDA-Public Use
  Company Number: US-ASTELLAS-2013US006637

PATIENT
  Age: 51 Year
  Sex: Female

DRUGS (10)
  1. TARCEVA [Suspect]
     Indication: LUNG CARCINOMA CELL TYPE UNSPECIFIED STAGE IV
     Dosage: 150 MG, UID/QD
     Route: 048
     Dates: start: 201302
  2. SIMETHICONE [Interacting]
     Indication: GASTROOESOPHAGEAL REFLUX DISEASE
     Dosage: UNK
     Route: 048
  3. ONDANSETRON [Concomitant]
     Indication: NAUSEA
     Dosage: 8 MG, TID
     Route: 048
  4. XANAX [Concomitant]
     Indication: ANXIETY
     Dosage: 1 MG, TID
     Route: 048
  5. LORAZEPAM [Concomitant]
     Indication: ANXIETY
     Dosage: 2 MG, TID
     Route: 048
  6. TAGAMET                            /00397401/ [Concomitant]
     Indication: GASTROOESOPHAGEAL REFLUX DISEASE
     Dosage: 800 MG, UID/QD
     Route: 048
  7. DOXYCYCLINE [Concomitant]
     Indication: RASH
     Dosage: UNK
     Route: 048
  8. ATENOLOL [Concomitant]
     Indication: HYPERTENSION
     Dosage: 25 MG, PRN
     Route: 048
  9. LISINOPRIL/HCTZ [Concomitant]
     Indication: PRODUCT USED FOR UNKNOWN INDICATION
     Dosage: 10 MG, BID
     Route: 048
  10. GLYBURIDE [Concomitant]
     Indication: DIABETES MELLITUS
     Dosage: UNK
     Route: 048

REACTIONS (19)
  - Drug interaction [Unknown]
  - Gastrooesophageal reflux disease [Unknown]
  - Chest pain [Unknown]
  - Enamel anomaly [Unknown]
  - Tooth deposit [Unknown]
  - Abdominal pain upper [Unknown]
  - Muscle spasms [Unknown]
  - Pain [Unknown]
  - Hypertension [Unknown]
  - Blood glucose increased [Unknown]
  - Muscle spasms [Unknown]
  - Pain [Unknown]
  - Hypokalaemia [Unknown]
  - Nausea [Unknown]
  - Rash [Unknown]
  - Rash pruritic [Unknown]
  - Erythema [Unknown]
  - Dyspnoea [Unknown]
  - Chest pain [Unknown]
